FAERS Safety Report 4845050-6 (Version None)
Quarter: 2005Q4

REPORT INFORMATION
  Report Type: 
  Country: None (occurrence: None)
  Receive Date: 20051205
  Receipt Date: 20050718
  Transmission Date: 20060501
  Serious: Yes (Hospitalization, Other)
  Sender: FDA-Public Use
  Company Number: US-MERCK-0507USA03014

PATIENT
  Age: 49 Year
  Sex: Male
  Weight: 92 kg

DRUGS (6)
  1. VIOXX [Suspect]
     Indication: ARTHRITIS
     Route: 048
     Dates: start: 20020325, end: 20050401
  2. PREVACID [Concomitant]
     Route: 065
  3. HYDROCODONE HYDROCHLORIDE [Concomitant]
     Route: 065
  4. ULTRAM [Concomitant]
     Route: 065
  5. OXYCODONE AND ACETAMINOPHEN [Concomitant]
     Route: 065
  6. TYLENOL SINUS [Concomitant]
     Route: 065

REACTIONS (3)
  - CARDIOVASCULAR DISORDER [None]
  - INTRACARDIAC THROMBUS [None]
  - MYOCARDIAL INFARCTION [None]
